FAERS Safety Report 13070115 (Version 5)
Quarter: 2017Q1

REPORT INFORMATION
  Report Type: Report from Study
  Country: None (occurrence: FR)
  Receive Date: 20161228
  Receipt Date: 20170320
  Transmission Date: 20170428
  Serious: Yes (Life-Threatening, Hospitalization, Other)
  Sender: FDA-Public Use
  Company Number: FR-ABBVIE-16P-056-1765834-00

PATIENT
  Age: 70 Year
  Sex: Male

DRUGS (21)
  1. VENETOCLAX [Suspect]
     Active Substance: VENETOCLAX
     Route: 048
     Dates: start: 20161216, end: 20161221
  2. FLECAINE [Concomitant]
     Active Substance: FLECAINIDE
     Indication: ARRHYTHMIA
  3. INTRAVENOUS HYDRATION [Concomitant]
     Indication: TUMOUR LYSIS SYNDROME
  4. VENETOCLAX [Suspect]
     Active Substance: VENETOCLAX
     Route: 048
     Dates: start: 20161229, end: 201701
  5. FLECAINE [Concomitant]
     Active Substance: FLECAINIDE
     Indication: ATRIAL FIBRILLATION
     Route: 048
  6. METOPROLOL. [Concomitant]
     Active Substance: METOPROLOL
     Indication: ATRIAL FIBRILLATION
     Route: 048
  7. CLAIRYG (IMMUNOGLOBULINS) [Concomitant]
     Indication: INFECTION
     Dates: start: 20140101
  8. VENETOCLAX [Suspect]
     Active Substance: VENETOCLAX
     Route: 048
     Dates: start: 20161222, end: 20161228
  9. VENETOCLAX [Suspect]
     Active Substance: VENETOCLAX
     Indication: CHRONIC LYMPHOCYTIC LEUKAEMIA
     Route: 048
     Dates: start: 20161018, end: 20161023
  10. VENETOCLAX [Suspect]
     Active Substance: VENETOCLAX
     Route: 048
     Dates: start: 20161031, end: 20161106
  11. METOPROLOL. [Concomitant]
     Active Substance: METOPROLOL
     Indication: ARRHYTHMIA
  12. RASBURICASE [Concomitant]
     Active Substance: RASBURICASE
     Indication: PROPHYLAXIS
  13. INTRAVENOUS HYDRATION [Concomitant]
     Indication: FLUID REPLACEMENT
  14. VENETOCLAX [Suspect]
     Active Substance: VENETOCLAX
     Route: 048
     Dates: start: 20161024, end: 20161030
  15. RASBURICASE [Concomitant]
     Active Substance: RASBURICASE
     Indication: TUMOUR LYSIS SYNDROME
  16. VENETOCLAX [Suspect]
     Active Substance: VENETOCLAX
     Route: 048
     Dates: start: 20161107, end: 20161113
  17. VENETOCLAX [Suspect]
     Active Substance: VENETOCLAX
     Route: 048
     Dates: start: 20161114, end: 20161125
  18. VENETOCLAX [Suspect]
     Active Substance: VENETOCLAX
     Route: 048
  19. INEXIUM (ESOMEPRAZOLE) [Concomitant]
     Active Substance: ESOMEPRAZOLE
     Indication: PEPTIC ULCER
     Route: 048
     Dates: start: 20161017
  20. INEXIUM (ESOMEPRAZOLE) [Concomitant]
     Active Substance: ESOMEPRAZOLE
     Indication: PROPHYLAXIS
  21. INTRAVENOUS HYDRATION [Concomitant]
     Indication: PROPHYLAXIS

REACTIONS (4)
  - Renal failure [Recovered/Resolved]
  - Tumour lysis syndrome [Recovered/Resolved]
  - Haemolytic anaemia [Recovering/Resolving]
  - Hyperthermia [Recovered/Resolved]

NARRATIVE: CASE EVENT DATE: 20161019
